FAERS Safety Report 24277315 (Version 1)
Quarter: 2024Q3

REPORT INFORMATION
  Report Type: Spontaneous
  Country: DK (occurrence: DK)
  Receive Date: 20240903
  Receipt Date: 20240903
  Transmission Date: 20241016
  Serious: Yes (Hospitalization, Other)
  Sender: PFIZER
  Company Number: DK-PFIZER INC-PV202400114815

PATIENT
  Age: 68 Year
  Sex: Female

DRUGS (3)
  1. DILTIAZEM HYDROCHLORIDE [Suspect]
     Active Substance: DILTIAZEM HYDROCHLORIDE
     Indication: Myocardial infarction
     Dosage: 120 MG, 3X/DAY
  2. ASPIRIN [Concomitant]
     Active Substance: ASPIRIN
     Indication: Myocardial infarction
     Dosage: 150 MG, 1X/DAY
  3. TENORMIN [Concomitant]
     Active Substance: ATENOLOL
     Indication: Angina pectoris
     Dosage: 50 MG, 1X/DAY

REACTIONS (1)
  - Granulomatous liver disease [Recovered/Resolved]
